FAERS Safety Report 6144788-0 (Version None)
Quarter: 2009Q2

REPORT INFORMATION
  Report Type: 
  Country: None (occurrence: None)
  Receive Date: 20090401
  Receipt Date: 20090401
  Transmission Date: 20091009
  Serious: No
  Sender: FDA-Public Use
  Company Number: None

PATIENT
  Sex: Female
  Weight: 90.91 kg

DRUGS (15)
  1. HYDRALAZINE HCL [Suspect]
     Dosage: 10MG TABLET 10 MG TID ORAL
     Route: 048
     Dates: start: 20080808, end: 20090331
  2. ALLEGRA [Concomitant]
  3. AMOXICILLIN [Concomitant]
  4. ASPIRIN [Concomitant]
  5. ATENOLOL [Concomitant]
  6. DIPROLENE [Concomitant]
  7. DYAZIDE [Concomitant]
  8. LIPITOR [Concomitant]
  9. MOMETASONE FUROATE [Concomitant]
  10. MULTIVITIMINS [Concomitant]
  11. NASONEX [Concomitant]
  12. PROCTOSOL HC [Concomitant]
  13. XANAX [Concomitant]
  14. ZESTRIL [Concomitant]
  15. ZOSTAVAX [Concomitant]

REACTIONS (2)
  - OEDEMA [None]
  - PAIN IN EXTREMITY [None]
